FAERS Safety Report 5752097-4 (Version None)
Quarter: 2008Q2

REPORT INFORMATION
  Report Type: 
  Country: None (occurrence: None)
  Receive Date: 20080529
  Receipt Date: 20080312
  Transmission Date: 20081010
  Serious: Yes (Other)
  Sender: FDA-Public Use
  Company Number: IE-VALEANT-2008VX000486

PATIENT
  Sex: Male

DRUGS (1)
  1. DALMANE [Suspect]
     Route: 065

REACTIONS (4)
  - ABNORMAL BEHAVIOUR [None]
  - ALCOHOL USE [None]
  - OVERDOSE [None]
  - SELF-MEDICATION [None]
